FAERS Safety Report 9935649 (Version 2)
Quarter: 2014Q1

REPORT INFORMATION
  Report Type: Spontaneous
  Country: GB (occurrence: GB)
  Receive Date: 20140228
  Receipt Date: 20140326
  Transmission Date: 20141002
  Serious: Yes (Hospitalization)
  Sender: FDA-Public Use
  Company Number: GB-009507513-1402GBR011673

PATIENT
  Age: 58 Year
  Sex: Male

DRUGS (7)
  1. TEMOZOLOMIDE [Suspect]
     Indication: GLIOBLASTOMA
     Dosage: UNK
     Route: 048
  2. DEXAMETHASONE [Suspect]
     Dosage: 4 MG, QD
  3. TAZOCIN [Suspect]
  4. ATENOLOL [Concomitant]
  5. LISINOPRIL [Concomitant]
     Route: 048
  6. METFORMIN [Concomitant]
  7. LEVOTHYROXINE SODIUM [Concomitant]
     Route: 048

REACTIONS (2)
  - Neutropenic sepsis [Unknown]
  - Demyelination [Unknown]
